FAERS Safety Report 12775515 (Version 1)
Quarter: 2016Q3

REPORT INFORMATION
  Report Type: Spontaneous
  Country: US (occurrence: US)
  Receive Date: 20160920
  Receipt Date: 20160920
  Transmission Date: 20161109
  Serious: Yes (Hospitalization)
  Sender: FDA-Public Use
  Company Number: None

PATIENT
  Age: 14 Year
  Sex: Male
  Weight: 61.3 kg

DRUGS (6)
  1. METHOTREXATE. [Suspect]
     Active Substance: METHOTREXATE
     Dates: end: 20160819
  2. CYTARABINE. [Suspect]
     Active Substance: CYTARABINE
     Dates: end: 20160811
  3. VINCRISTINE SULFATE. [Suspect]
     Active Substance: VINCRISTINE SULFATE
     Dates: end: 20160902
  4. ONCASPAR [Suspect]
     Active Substance: PEGASPARGASE
     Dosage: 4162.5 UNIT
     Dates: end: 20160815
  5. PREDNISONE. [Suspect]
     Active Substance: PREDNISONE
     Dates: end: 20160908
  6. DAUNORUBICIN [Suspect]
     Active Substance: DAUNORUBICIN
     Dates: end: 20160902

REACTIONS (6)
  - Liver function test increased [None]
  - Hyperbilirubinaemia [None]
  - Hepatosplenomegaly [None]
  - Serum ferritin increased [None]
  - Pancytopenia [None]
  - Cytomegalovirus infection [None]

NARRATIVE: CASE EVENT DATE: 20160907
